FAERS Safety Report 18888537 (Version 1)
Quarter: 2021Q1

REPORT INFORMATION
  Report Type: Report from Study
  Country: JP (occurrence: JP)
  Receive Date: 20210212
  Receipt Date: 20210212
  Transmission Date: 20210420
  Serious: Yes (Death, Life-Threatening, Hospitalization, Other)
  Sender: FDA-Public Use
  Company Number: JP-JNJFOC-A-CH2016-144224

PATIENT
  Age: 63 Year
  Sex: Male

DRUGS (17)
  1. CARBOCISTEINE [Concomitant]
     Active Substance: CARBOCYSTEINE
     Indication: BRONCHITIS
     Route: 048
     Dates: end: 20190423
  2. BELSOMRA [Concomitant]
     Active Substance: SUVOREXANT
     Indication: INSOMNIA
     Route: 048
     Dates: start: 20180625, end: 20190423
  3. LASIX [Concomitant]
     Active Substance: FUROSEMIDE
     Indication: RIGHT VENTRICULAR FAILURE
     Route: 048
  4. GASTER [Concomitant]
     Active Substance: FAMOTIDINE
     Indication: GASTRITIS
     Route: 048
  5. TAKECAB [Concomitant]
     Active Substance: VONOPRAZAN FUMARATE
     Indication: GASTRIC ULCER
     Route: 048
     Dates: start: 20161222, end: 20190423
  6. DAIKENCHUTO [Concomitant]
     Active Substance: HERBALS
     Indication: CONSTIPATION
     Route: 048
     Dates: start: 20180615, end: 20190423
  7. RISPERIDONE. [Concomitant]
     Active Substance: RISPERIDONE
     Indication: SCHIZOPHRENIA
     Route: 048
     Dates: start: 20180625, end: 20190423
  8. REVATIO [Concomitant]
     Active Substance: SILDENAFIL CITRATE
     Indication: PULMONARY ARTERIAL HYPERTENSION
     Route: 048
     Dates: start: 20160621
  9. CARTIN [Concomitant]
     Indication: CARNITINE DECREASED
     Route: 048
     Dates: start: 20180615, end: 20190423
  10. PIARLE [Concomitant]
     Active Substance: LACTULOSE
     Indication: HYPERAMMONAEMIA
     Route: 048
     Dates: start: 20180615, end: 20190423
  11. AZOSEMIDE [Concomitant]
     Active Substance: AZOSEMIDE
     Indication: RIGHT VENTRICULAR FAILURE
     Route: 048
     Dates: start: 20180615, end: 20190423
  12. OPSUMIT [Suspect]
     Active Substance: MACITENTAN
     Indication: PULMONARY ARTERIAL HYPERTENSION
  13. REVATIO [Concomitant]
     Active Substance: SILDENAFIL CITRATE
     Route: 048
     Dates: start: 20160818, end: 20190423
  14. OPSUMIT [Suspect]
     Active Substance: MACITENTAN
     Indication: PULMONARY ARTERIAL HYPERTENSION
     Dosage: 10 MG, IN THE MORNING
     Route: 048
     Dates: start: 20160614, end: 20190423
  15. PURSENNIDE [Concomitant]
     Indication: CONSTIPATION
     Route: 048
     Dates: end: 20190423
  16. MAGNESIUM OXIDE. [Concomitant]
     Active Substance: MAGNESIUM OXIDE
     Indication: CONSTIPATION
     Route: 048
     Dates: start: 20180615, end: 20190423
  17. ROZEREM [Concomitant]
     Active Substance: RAMELTEON
     Indication: INSOMNIA
     Route: 048
     Dates: start: 20180625, end: 20190423

REACTIONS (11)
  - Subdural haematoma [Recovered/Resolved]
  - Haematocrit decreased [Recovered/Resolved]
  - Malaise [Recovering/Resolving]
  - Subdural haematoma evacuation [Unknown]
  - Depressed level of consciousness [Recovering/Resolving]
  - Red blood cell count decreased [Recovered/Resolved]
  - Hepatic failure [Fatal]
  - Hepatic encephalopathy [Recovering/Resolving]
  - Anaemia [Recovered/Resolved]
  - Hepatic cirrhosis [Fatal]
  - Haemoglobin decreased [Recovered/Resolved]

NARRATIVE: CASE EVENT DATE: 20160721
